FAERS Safety Report 16631120 (Version 2)
Quarter: 2019Q3

REPORT INFORMATION
  Report Type: Report from Study
  Country: IN (occurrence: IN)
  Receive Date: 20190725
  Receipt Date: 20190920
  Transmission Date: 20191004
  Serious: Yes (Hospitalization)
  Sender: FDA-Public Use
  Company Number: IN-NOVOPROD-672101

PATIENT
  Age: 63 Year
  Sex: Male
  Weight: 90 kg

DRUGS (11)
  1. SEMAGLUTIDE B 3.0 MG/ML PDS290 [Suspect]
     Active Substance: SEMAGLUTIDE
     Dosage: 0.24 MG, QW
     Route: 058
     Dates: start: 20190503, end: 20190620
  2. CREMAFFIN PLUS [Concomitant]
     Indication: CONSTIPATION
     Dosage: UNK
     Dates: start: 20190610
  3. ACETYLSALICYLIC ACID [Concomitant]
     Active Substance: ASPIRIN
     Dosage: 300.0,MG,
     Dates: start: 20181218
  4. METOPROLOL. [Concomitant]
     Active Substance: METOPROLOL
     Dosage: 50.0,MG,
     Dates: start: 20181218
  5. FUROSEMIDE. [Concomitant]
     Active Substance: FUROSEMIDE
     Dosage: 40.0,MG,
     Dates: start: 20181218
  6. SEMAGLUTIDE B 3.0 MG/ML PDS290 [Suspect]
     Active Substance: SEMAGLUTIDE
     Dosage: 0.24 MG, QW
     Route: 058
     Dates: start: 20190705, end: 20190706
  7. ISOSORBIDE DINITRATE. [Concomitant]
     Active Substance: ISOSORBIDE DINITRATE
     Dosage: 5.0,MG,
     Dates: start: 20190103
  8. CLOPIDOGREL [Concomitant]
     Active Substance: CLOPIDOGREL BISULFATE
     Dosage: 150.0,MG,
     Dates: start: 20181218
  9. SEMAGLUTIDE B 3.0 MG/ML PDS290 [Suspect]
     Active Substance: SEMAGLUTIDE
     Indication: OBESITY
     Dosage: 0.24,MG,ONCE PER WEEK
     Route: 058
     Dates: start: 20190503, end: 20190706
  10. ATORVASTATIN [Concomitant]
     Active Substance: ATORVASTATIN
     Dosage: 40.0,MG,
     Dates: start: 20181218
  11. RAMIPRIL. [Concomitant]
     Active Substance: RAMIPRIL
     Dosage: 5.0,MG,
     Dates: start: 20181218

REACTIONS (4)
  - Flatulence [Recovered/Resolved]
  - Constipation [Recovered/Resolved]
  - Abdominal distension [Recovered/Resolved]
  - Eructation [Recovered/Resolved]

NARRATIVE: CASE EVENT DATE: 20190517
